FAERS Safety Report 17108829 (Version 1)
Quarter: 2019Q4

REPORT INFORMATION
  Report Type: Spontaneous
  Country: TR (occurrence: TR)
  Receive Date: 20191203
  Receipt Date: 20191203
  Transmission Date: 20200122
  Serious: Yes (Life-Threatening, Hospitalization)
  Sender: FDA-Public Use
  Company Number: TR-GE HEALTHCARE LIFE SCIENCES-2019CSU006057

PATIENT

DRUGS (5)
  1. OMNIPAQUE [Suspect]
     Active Substance: IOHEXOL
     Indication: COMPUTERISED TOMOGRAM THORAX
     Dosage: 100 ML (INJECTED VIA AUTO INJECTOR), SINGLE
     Route: 042
  2. OMNIPAQUE [Suspect]
     Active Substance: IOHEXOL
     Indication: CHEST PAIN
  3. OMNIPAQUE [Suspect]
     Active Substance: IOHEXOL
     Indication: VASCULAR INJURY
  4. OMNIPAQUE [Suspect]
     Active Substance: IOHEXOL
     Indication: SPLENIC INJURY
  5. OMNIPAQUE [Suspect]
     Active Substance: IOHEXOL
     Indication: FALL

REACTIONS (1)
  - Air embolism [Recovered/Resolved]
